FAERS Safety Report 12401644 (Version 2)
Quarter: 2016Q2

REPORT INFORMATION
  Report Type: Spontaneous
  Country: JP (occurrence: JP)
  Receive Date: 20160525
  Receipt Date: 20160602
  Transmission Date: 20160815
  Serious: Yes (Hospitalization, Other)
  Sender: FDA-Public Use
  Company Number: JP-NOVOPROD-492315

PATIENT
  Age: 49 Year
  Sex: Male
  Weight: 66 kg

DRUGS (8)
  1. RENIVACE [Concomitant]
     Active Substance: ENALAPRIL
     Indication: HYPERTENSION
     Dosage: 5 MG, QD
     Route: 048
  2. ZOLPIDEM [Concomitant]
     Active Substance: ZOLPIDEM\ZOLPIDEM TARTRATE
     Indication: DEPRESSION
     Dosage: 10 MG, QD
     Route: 048
     Dates: start: 20151023
  3. NOVORAPID [Suspect]
     Active Substance: INSULIN ASPART
     Dosage: UNK
     Route: 058
     Dates: start: 20160516
  4. SOLANAX [Concomitant]
     Active Substance: ALPRAZOLAM
     Indication: DEPRESSION
     Dosage: 0.10 MG, QD
     Route: 048
     Dates: start: 20151023
  5. NOVORAPID [Suspect]
     Active Substance: INSULIN ASPART
     Dosage: 2000 IU, QD
     Route: 058
     Dates: start: 20160511, end: 20160511
  6. ANAFRANIL [Concomitant]
     Active Substance: CLOMIPRAMINE HYDROCHLORIDE
     Indication: DEPRESSION
     Dosage: 25 MG, QD
     Route: 048
     Dates: start: 20151023
  7. DOGMATYL [Concomitant]
     Active Substance: SULPIRIDE
     Indication: DEPRESSION
     Dosage: 200 MG, QD
     Route: 048
     Dates: start: 20151023
  8. NOVORAPID [Suspect]
     Active Substance: INSULIN ASPART
     Indication: TYPE 1 DIABETES MELLITUS
     Dosage: (BOLUS 8.9-9IU/H / BASAL:0.9IU/H)
     Route: 058

REACTIONS (3)
  - Hypoglycaemic unconsciousness [Recovered/Resolved]
  - Suicide attempt [Unknown]
  - Intentional overdose [Unknown]

NARRATIVE: CASE EVENT DATE: 20160511
